FAERS Safety Report 9840024 (Version 2)
Quarter: 2014Q1

REPORT INFORMATION
  Report Type: Spontaneous
  Country: CZ (occurrence: CZ)
  Receive Date: 20140124
  Receipt Date: 20140203
  Transmission Date: 20141002
  Serious: Yes (Hospitalization)
  Sender: FDA-Public Use
  Company Number: CZ-ROCHE-1336035

PATIENT
  Age: 49 Year
  Sex: Female
  Weight: 53 kg

DRUGS (5)
  1. ROACTEMRA [Suspect]
     Indication: JUVENILE IDIOPATHIC ARTHRITIS
     Route: 041
     Dates: start: 20131024
  2. VESSEL DUE [Concomitant]
     Dosage: 1-0-1
     Route: 065
  3. GLYVENOL [Concomitant]
     Dosage: 1-0-1
     Route: 065
  4. METOJECT [Concomitant]
     Route: 040
  5. AULIN [Concomitant]
     Dosage: 1-0-1
     Route: 065

REACTIONS (2)
  - Pancreatic disorder [Recovering/Resolving]
  - Gastrooesophageal reflux disease [Unknown]
